FAERS Safety Report 6097888-8 (Version None)
Quarter: 2009Q1

REPORT INFORMATION
  Report Type: 
  Country: None (occurrence: None)
  Receive Date: 20090227
  Receipt Date: 20090218
  Transmission Date: 20090719
  Serious: Yes (Hospitalization, Other)
  Sender: FDA-Public Use
  Company Number: PHHY2009JP02470

PATIENT
  Age: 21 Year
  Sex: Male

DRUGS (9)
  1. NEORAL [Suspect]
     Indication: APLASTIC ANAEMIA
     Dosage: 150 MG/DAY
     Route: 048
     Dates: start: 20020101, end: 20030701
  2. NEORAL [Suspect]
     Dosage: 100 MG/DAY
     Route: 048
     Dates: end: 20030701
  3. NEORAL [Suspect]
     Dosage: 150 MG/DAY
     Route: 048
     Dates: start: 20030701
  4. NEORAL [Suspect]
     Dosage: UNK
     Dates: end: 20040829
  5. PREDONINE [Concomitant]
     Indication: GRAFT VERSUS HOST DISEASE
     Dosage: 50 MG
  6. CYCLOPHOSPHAMIDE [Concomitant]
     Indication: APLASTIC ANAEMIA
  7. SANDIMMUNE [Concomitant]
     Dosage: 45 MG, BID
     Dates: start: 20020827, end: 20020101
  8. SANDIMMUNE [Concomitant]
     Dosage: 45-70 MG
  9. IMMUNOGLOBULIN ANTI-HUMAN-LYMPHOCYTIC [Concomitant]
     Indication: APLASTIC ANAEMIA

REACTIONS (15)
  - ACUTE GRAFT VERSUS HOST DISEASE [None]
  - ADENOVIRAL HAEMORRHAGIC CYSTITIS [None]
  - CHRONIC GRAFT VERSUS HOST DISEASE [None]
  - DYSPNOEA [None]
  - HEPATITIS B [None]
  - HERPES ZOSTER [None]
  - LUNG DISORDER [None]
  - ORAL DISORDER [None]
  - ORGANISING PNEUMONIA [None]
  - PNEUMOMEDIASTINUM [None]
  - PNEUMOTHORAX [None]
  - PYREXIA [None]
  - RASH [None]
  - SUBCUTANEOUS EMPHYSEMA [None]
  - VARICELLA [None]
